FAERS Safety Report 26196944 (Version 1)
Quarter: 2025Q4

REPORT INFORMATION
  Report Type: Spontaneous
  Country: US (occurrence: US)
  Receive Date: 20251224
  Receipt Date: 20251224
  Transmission Date: 20260119
  Serious: Yes (Other)
  Sender: MERCK SHARP & DOHME LLC
  Company Number: US-009507513-2361431

PATIENT
  Age: 69 Year
  Sex: Male

DRUGS (3)
  1. IMIPENEM [Suspect]
     Active Substance: IMIPENEM
  2. LINEZOLID [Suspect]
     Active Substance: LINEZOLID
  3. AMIKACIN [Suspect]
     Active Substance: AMIKACIN

REACTIONS (3)
  - Neurotoxicity [Unknown]
  - Pancytopenia [Unknown]
  - Deafness [Unknown]
